FAERS Safety Report 11453210 (Version 2)
Quarter: 2015Q3

REPORT INFORMATION
  Report Type: Spontaneous
  Country: US (occurrence: US)
  Receive Date: 20150903
  Receipt Date: 20150915
  Transmission Date: 20151125
  Serious: No
  Sender: FDA-Public Use
  Company Number: US-009507513-1507USA006434

PATIENT
  Age: 86 Year
  Sex: Female
  Weight: 69.84 kg

DRUGS (1)
  1. ASMANEX [Suspect]
     Active Substance: MOMETASONE FUROATE
     Dosage: 220 MICROGRAM (ONE PUFF), TWICE DAILY
     Route: 055
     Dates: start: 20150502

REACTIONS (3)
  - Oral candidiasis [Unknown]
  - Drug dose omission [Unknown]
  - Drug administration error [Unknown]

NARRATIVE: CASE EVENT DATE: 2015
